FAERS Safety Report 11312669 (Version 1)
Quarter: 2015Q3

REPORT INFORMATION
  Report Type: Spontaneous
  Country: US (occurrence: None)
  Receive Date: 20150724
  Receipt Date: 20150724
  Transmission Date: 20151125
  Serious: No
  Sender: FDA-Public Use
  Company Number: None

PATIENT
  Age: 44 Year
  Sex: Male
  Weight: 79.38 kg

DRUGS (2)
  1. MUPIROCIN OINTMENT [Concomitant]
     Active Substance: MUPIROCIN
  2. CLINDAMYCIN [Suspect]
     Active Substance: CLINDAMYCIN\CLINDAMYCIN PHOSPHATE
     Indication: INFECTED BITE
     Dosage: 1 PILL, THREE TIMES A DAILY, TAKEB BY MOUTH
     Route: 048
     Dates: start: 20150720, end: 20150720

REACTIONS (1)
  - Dyspepsia [None]

NARRATIVE: CASE EVENT DATE: 20150720
